FAERS Safety Report 9643521 (Version 2)
Quarter: 2013Q4

REPORT INFORMATION
  Report Type: Spontaneous
  Country: IL (occurrence: IL)
  Receive Date: 20131024
  Receipt Date: 20131125
  Transmission Date: 20140711
  Serious: Yes (Death)
  Sender: FDA-Public Use
  Company Number: IL-PFIZER INC-2013302609

PATIENT
  Sex: Female

DRUGS (1)
  1. XALKORI [Suspect]
     Indication: LUNG ADENOCARCINOMA METASTATIC
     Dosage: 250 MG, 2X/DAY
     Route: 048
     Dates: start: 20130208, end: 201309

REACTIONS (6)
  - Disease progression [Fatal]
  - Lung adenocarcinoma metastatic [Fatal]
  - Hepatic enzyme increased [Not Recovered/Not Resolved]
  - Nausea [Recovered/Resolved]
  - Vomiting [Recovered/Resolved]
  - Oedema peripheral [Not Recovered/Not Resolved]
